FAERS Safety Report 8033138-0 (Version None)
Quarter: 2012Q1

REPORT INFORMATION
  Report Type: 
  Country: None (occurrence: None)
  Receive Date: 20120110
  Receipt Date: 20120110
  Transmission Date: 20120608
  Serious: Yes (Life-Threatening, Hospitalization)
  Sender: FDA-Public Use
  Company Number: None

PATIENT
  Age: 23 Year
  Sex: Female
  Weight: 69.9 kg

DRUGS (24)
  1. METOCLOPRAMIDE [Concomitant]
     Route: 048
  2. PANTOPRAZOLE [Concomitant]
     Route: 048
  3. ZOFRAN [Concomitant]
     Route: 048
  4. RITONAVIR [Concomitant]
     Route: 048
  5. TRUVADA [Concomitant]
     Route: 048
  6. IBUPROFEN [Concomitant]
  7. AZITHROMYCIN [Concomitant]
     Route: 042
  8. BACTRIUM-DS [Concomitant]
     Route: 048
  9. SIMETHICONE [Concomitant]
     Route: 048
  10. LOPERAMIDE [Concomitant]
     Route: 048
  11. LINEZOLID [Suspect]
     Indication: MYCOBACTERIUM AVIUM COMPLEX INFECTION
     Dosage: 600 MG
  12. POTASSIUM CHLORIDE [Concomitant]
     Route: 048
  13. ALBUTEROL [Concomitant]
  14. ACETAMINOPHEN [Concomitant]
     Route: 048
  15. FOLIC ACID [Concomitant]
     Route: 048
  16. AZITHROMYCIN [Concomitant]
  17. CLOFAZIMINE [Concomitant]
     Route: 048
  18. RALTEGRAVIR [Concomitant]
     Route: 048
  19. FERROUS SULFATE TAB [Concomitant]
     Route: 048
  20. REGLAN [Concomitant]
     Route: 048
  21. TPN [Concomitant]
  22. MORPHINE [Concomitant]
     Route: 048
  23. DARUNAVIR [Concomitant]
     Route: 048
  24. ETHAMBUTOL HYDROCHLORIDE [Concomitant]
     Route: 048

REACTIONS (12)
  - DYSPNOEA [None]
  - CARDIAC FAILURE HIGH OUTPUT [None]
  - MITOCHONDRIAL TOXICITY [None]
  - MALAISE [None]
  - ABDOMINAL PAIN [None]
  - VOMITING [None]
  - CONDITION AGGRAVATED [None]
  - SEPSIS [None]
  - TACHYCARDIA [None]
  - NAUSEA [None]
  - LACTIC ACIDOSIS [None]
  - RESPIRATORY FAILURE [None]
